FAERS Safety Report 13998228 (Version 2)
Quarter: 2017Q3

REPORT INFORMATION
  Report Type: Spontaneous
  Country: UY (occurrence: UY)
  Receive Date: 20170921
  Receipt Date: 20170925
  Transmission Date: 20171128
  Serious: Yes (Death, Hospitalization)
  Sender: FDA-Public Use
  Company Number: UY-B.I. PHARMACEUTICALS,INC./RIDGEFIELD-2017-BI-051260

PATIENT
  Age: 79 Year
  Sex: Male

DRUGS (1)
  1. PRADAXA [Suspect]
     Active Substance: DABIGATRAN ETEXILATE MESYLATE
     Indication: ATRIAL FIBRILLATION
     Route: 048
     Dates: start: 201706, end: 20170918

REACTIONS (1)
  - Aortic dissection [Fatal]

NARRATIVE: CASE EVENT DATE: 20170918
